FAERS Safety Report 13150411 (Version 8)
Quarter: 2017Q2

REPORT INFORMATION
  Report Type: Spontaneous
  Country: US (occurrence: US)
  Receive Date: 20170125
  Receipt Date: 20170512
  Transmission Date: 20170830
  Serious: Yes (Hospitalization, Other)
  Sender: FDA-Public Use
  Company Number: US-PFIZER INC-2017030257

PATIENT
  Age: 38 Year
  Sex: Female
  Weight: 77 kg

DRUGS (19)
  1. PREMARIN [Suspect]
     Active Substance: ESTROGENS, CONJUGATED
     Indication: HORMONE REPLACEMENT THERAPY
     Dosage: 0.625 MG, 1X/DAY
     Route: 048
     Dates: start: 200207, end: 200306
  2. PREMARIN [Suspect]
     Active Substance: ESTROGENS, CONJUGATED
     Indication: OSTEOPOROSIS PROPHYLAXIS
  3. ABILIFY [Concomitant]
     Active Substance: ARIPIPRAZOLE
     Indication: BIPOLAR DISORDER
     Dosage: 0.5 MG, 1X/DAY
     Dates: start: 2004
  4. HCTZ [Concomitant]
     Active Substance: HYDROCHLOROTHIAZIDE
     Indication: RENAL DISORDER
     Dosage: 12.5 MG, 1X/DAY
     Dates: start: 2014
  5. HCTZ [Concomitant]
     Active Substance: HYDROCHLOROTHIAZIDE
     Indication: BLOOD PRESSURE INCREASED
     Dosage: UNK
  6. CLARITIN [Concomitant]
     Active Substance: LORATADINE
     Indication: DRUG HYPERSENSITIVITY
     Dosage: UNK, 1X/DAY
     Dates: start: 1991
  7. LISINOPRIL. [Concomitant]
     Active Substance: LISINOPRIL
     Indication: BLOOD PRESSURE INCREASED
     Dosage: 20 MG, 1X/DAY
     Route: 048
     Dates: start: 2014
  8. ASPIRIN BAYER [Concomitant]
     Active Substance: ASPIRIN
     Dosage: UNK, (2-3 TIMES A WEEK)
     Dates: start: 2003
  9. LISINOPRIL. [Concomitant]
     Active Substance: LISINOPRIL
     Indication: PULMONARY HYPERTENSION
  10. HCTZ [Concomitant]
     Active Substance: HYDROCHLOROTHIAZIDE
     Indication: RENAL FAILURE
  11. PREMARIN [Suspect]
     Active Substance: ESTROGENS, CONJUGATED
     Indication: POSTMENOPAUSE
  12. ASPIRIN. [Concomitant]
     Active Substance: ASPIRIN
     Dosage: 83 MG, 1X/DAY
     Route: 048
  13. PREMARIN [Suspect]
     Active Substance: ESTROGENS, CONJUGATED
     Indication: OSTEOPOROSIS
  14. ASPIRIN BAYER [Concomitant]
     Active Substance: ASPIRIN
     Dosage: 83 MG, UNK, (LOW DOSE)
     Dates: start: 2004
  15. VITAMIN D [Concomitant]
     Active Substance: CHOLECALCIFEROL
     Indication: BONE DISORDER
     Dosage: UNK
     Dates: start: 199909
  16. VITAMIN D [Concomitant]
     Active Substance: CHOLECALCIFEROL
     Indication: OSTEOPOROSIS
     Dosage: 400 MG, 1X/DAY
     Route: 048
     Dates: start: 2014
  17. ABILIFY [Concomitant]
     Active Substance: ARIPIPRAZOLE
     Dosage: 5 MG, 1X/DAY
     Route: 048
     Dates: start: 2004
  18. LISINOPRIL. [Concomitant]
     Active Substance: LISINOPRIL
     Indication: BLOOD PRESSURE MEASUREMENT
  19. METOPROLOL. [Concomitant]
     Active Substance: METOPROLOL
     Dosage: 200 MG, DAILY

REACTIONS (17)
  - Pulmonary embolism [Not Recovered/Not Resolved]
  - Chest pain [Recovered/Resolved]
  - Hypertension [Recovered/Resolved]
  - Dyspnoea [Recovered/Resolved]
  - Shock [Recovered/Resolved]
  - Venous injury [Unknown]
  - Abdominal discomfort [Recovered/Resolved with Sequelae]
  - Blood folate increased [Unknown]
  - Bipolar disorder [Recovered/Resolved]
  - Organ failure [Recovered/Resolved]
  - Sinus arrhythmia [Recovered/Resolved with Sequelae]
  - Post-traumatic stress disorder [Recovered/Resolved]
  - Paraesthesia [Recovered/Resolved]
  - Angiopathy [Not Recovered/Not Resolved]
  - Thrombosis [Recovered/Resolved]
  - Liver disorder [Not Recovered/Not Resolved]
  - Renal disorder [Not Recovered/Not Resolved]

NARRATIVE: CASE EVENT DATE: 2002
